FAERS Safety Report 10970561 (Version 1)
Quarter: 2015Q1

REPORT INFORMATION
  Report Type: Report from Study
  Country: GB (occurrence: GB)
  Receive Date: 20150331
  Receipt Date: 20150331
  Transmission Date: 20150721
  Serious: Yes (Other)
  Sender: FDA-Public Use
  Company Number: GB-ABBVIE-15K-167-1366326-00

PATIENT
  Sex: Female

DRUGS (2)
  1. HUMIRA [Suspect]
     Active Substance: ADALIMUMAB
     Route: 058
     Dates: start: 2015, end: 201503
  2. HUMIRA [Suspect]
     Active Substance: ADALIMUMAB
     Indication: PSORIASIS
     Route: 058
     Dates: start: 20150218, end: 20150218

REACTIONS (7)
  - Depression [Unknown]
  - Injection site pain [Unknown]
  - Paraesthesia [Unknown]
  - Head discomfort [Unknown]
  - Amnesia [Unknown]
  - Headache [Unknown]
  - Asthenia [Unknown]
